FAERS Safety Report 4525719-3 (Version None)
Quarter: 2004Q4

REPORT INFORMATION
  Report Type: 
  Country: None (occurrence: None)
  Receive Date: 20041116
  Receipt Date: 20040818
  Transmission Date: 20050328
  Serious: No
  Sender: FDA-Public Use
  Company Number: S04-USA-05954-01

PATIENT
  Age: 70 Year
  Sex: Female

DRUGS (4)
  1. NAMENDA [Suspect]
     Indication: DEMENTIA ALZHEIMER'S TYPE
  2. ARICEPT [Concomitant]
  3. HYDROCHLOROTHIAZIDE [Concomitant]
  4. CARDURA [Concomitant]

REACTIONS (3)
  - AGITATION [None]
  - FATIGUE [None]
  - TIC [None]
